FAERS Safety Report 4709226-0 (Version None)
Quarter: 2005Q3

REPORT INFORMATION
  Report Type: 
  Country: None (occurrence: None)
  Receive Date: 20050705
  Receipt Date: 20050622
  Transmission Date: 20060218
  Serious: Yes (Hospitalization, Other)
  Sender: FDA-Public Use
  Company Number: 214554

PATIENT
  Age: 13 Year
  Sex: Male
  Weight: 44.9 kg

DRUGS (7)
  1. XOLAIR [Suspect]
     Indication: ASTHMA
     Dosage: 300 MG, Q2W, SUBCUTANEOUS
     Route: 058
     Dates: start: 20050329, end: 20050510
  2. ZYRTEC [Concomitant]
  3. CLARITIN [Concomitant]
  4. XOPENEX [Concomitant]
  5. ALBUTEROL INHALER (ALBUTEROL, ALBUTEROL SULFATE) [Concomitant]
  6. ALBUTEROL NEBULIZER (ALBUTEROL SULFATE, ALBUTEROL) [Concomitant]
  7. SINGULAIR [Concomitant]

REACTIONS (8)
  - ARTHRALGIA [None]
  - ASTHENIA [None]
  - DIFFICULTY IN WALKING [None]
  - FATIGUE [None]
  - PAIN [None]
  - PAIN IN EXTREMITY [None]
  - PYREXIA [None]
  - VIRAL INFECTION [None]
